FAERS Safety Report 5110485-3 (Version None)
Quarter: 2006Q3

REPORT INFORMATION
  Report Type: 
  Country: None (occurrence: None)
  Receive Date: 20060921
  Receipt Date: 20060918
  Transmission Date: 20061208
  Serious: Yes (Other)
  Sender: FDA-Public Use
  Company Number: US-GLAXOSMITHKLINE-A0620740A

PATIENT
  Age: 65 Year
  Sex: Male
  Weight: 86.7 kg

DRUGS (4)
  1. BEXXAR [Suspect]
     Indication: NON-HODGKIN'S LYMPHOMA
     Dosage: 450MG SINGLE DOSE
     Route: 042
     Dates: start: 19980527, end: 19980527
  2. IODINE I 131 TOSITUMOMAB [Suspect]
     Indication: NON-HODGKIN'S LYMPHOMA
     Dosage: 5MCI SINGLE DOSE
     Route: 042
     Dates: start: 19980527, end: 19980527
  3. BEXXAR [Suspect]
     Dosage: 450MG SINGLE DOSE
     Route: 042
     Dates: start: 19980603, end: 19980603
  4. IODINE I 131 TOSITUMOMAB [Suspect]
     Dosage: 106MCI SINGLE DOSE
     Route: 042
     Dates: start: 19980603, end: 19980603

REACTIONS (5)
  - ARTHRALGIA [None]
  - FATIGUE [None]
  - HYPERTHYROIDISM [None]
  - VISUAL DISTURBANCE [None]
  - WEIGHT DECREASED [None]
